FAERS Safety Report 7096833-6 (Version None)
Quarter: 2010Q4

REPORT INFORMATION
  Report Type: 
  Country: None (occurrence: None)
  Receive Date: 20101111
  Receipt Date: 20101101
  Transmission Date: 20110411
  Serious: Yes (Other)
  Sender: FDA-Public Use
  Company Number: US-ROCHE-718646

PATIENT
  Sex: Male
  Weight: 77.1 kg

DRUGS (3)
  1. ACCUTANE [Suspect]
     Route: 065
     Dates: start: 19830201, end: 19830401
  2. ACCUTANE [Suspect]
     Route: 065
     Dates: start: 19860101
  3. ACCUTANE [Suspect]
     Dosage: LATE 1990'S
     Route: 065

REACTIONS (5)
  - CROHN'S DISEASE [None]
  - DIVERTICULUM [None]
  - DUODENAL ULCER [None]
  - GASTROINTESTINAL INJURY [None]
  - ILEAL FISTULA [None]
